FAERS Safety Report 5079564-3 (Version None)
Quarter: 2006Q3

REPORT INFORMATION
  Report Type: 
  Country: None (occurrence: None)
  Receive Date: 20060811
  Receipt Date: 20060811
  Transmission Date: 20061208
  Serious: Yes (Other)
  Sender: FDA-Public Use
  Company Number: None

PATIENT
  Sex: Female
  Weight: 65.7716 kg

DRUGS (1)
  1. DEPO-PROVERA [Suspect]
     Indication: MENSTRUATION IRREGULAR
     Dosage: 1 INJECTION     3 MONTHS    IM
     Route: 030
     Dates: start: 19920101, end: 19950501

REACTIONS (4)
  - CONDITION AGGRAVATED [None]
  - CONVULSION [None]
  - SKIN STRIAE [None]
  - WEIGHT INCREASED [None]
